FAERS Safety Report 23838774 (Version 1)
Quarter: 2024Q2

REPORT INFORMATION
  Report Type: Report from Study
  Country: CN (occurrence: CN)
  Receive Date: 20240509
  Receipt Date: 20240509
  Transmission Date: 20240717
  Serious: No
  Sender: FDA-Public Use
  Company Number: CN-BAXTER-2024BAX014911

PATIENT
  Sex: Female

DRUGS (2)
  1. CALCIUM CHLORIDE\DEXTROSE\MAGNESIUM CHLORIDE\SODIUM CHLORIDE\SODIUM LA [Suspect]
     Active Substance: CALCIUM CHLORIDE\DEXTROSE\DEXTROSE MONOHYDRATE\MAGNESIUM CHLORIDE\SODIUM CHLORIDE\SODIUM LACTATE
     Indication: End stage renal disease
     Dosage: FREQUENCY 4 (DETAILS NOT REPORTED)
     Route: 033
     Dates: start: 20220816
  2. UNSPECIFIED INGREDIENT [Suspect]
     Active Substance: UNSPECIFIED INGREDIENT
     Route: 065

REACTIONS (5)
  - Peritoneal dialysis complication [Recovered/Resolved]
  - Staphylococcal infection [Recovered/Resolved]
  - Infection [Unknown]
  - Peritoneal dialysis complication [Unknown]
  - Device related infection [Recovered/Resolved]
